FAERS Safety Report 18599482 (Version 1)
Quarter: 2020Q4

REPORT INFORMATION
  Report Type: Spontaneous
  Country: US (occurrence: US)
  Receive Date: 20201209
  Receipt Date: 20201209
  Transmission Date: 20210114
  Serious: No
  Sender: FDA-Public Use
  Company Number: None

PATIENT
  Age: 68 Year
  Sex: Male
  Weight: 48.15 kg

DRUGS (18)
  1. BUDESONIDE INHALATION SUSPENSION [Concomitant]
     Active Substance: BUDESONIDE
     Dates: start: 20200521
  2. MONTELUKAST [Concomitant]
     Active Substance: MONTELUKAST SODIUM
     Dates: start: 20200522
  3. LEVETIRACETAM ORAL SOLUTION 1500MG [Concomitant]
     Dates: start: 20200521
  4. POLYETHYLENE GLYCOL 3350 17GM [Concomitant]
     Dates: start: 20200522
  5. ALBUTEROL 0.083% NEBULIZER SOLUTION [Concomitant]
     Dates: start: 20200521
  6. LAMOTRIGINE 200MG [Concomitant]
     Active Substance: LAMOTRIGINE
     Dates: start: 20200521
  7. LANSOPRAZOLE SOLUTAB 30MG [Concomitant]
     Dates: start: 20200914
  8. METOCLOPRAMIDE 10MG [Concomitant]
     Active Substance: METOCLOPRAMIDE
     Dates: start: 20200521
  9. FORMOTEROL NEBULIZER SOLUTION 20MCG [Concomitant]
     Dates: start: 20200521
  10. IPRATROPIUM 0.06% NASAL SPRAY [Concomitant]
     Dates: start: 20200521
  11. MULTIVITAMIN WITH MINERAL LIQUID [Concomitant]
     Dates: start: 20200522
  12. CALCIUM CARBONATE ORAL SUSPENSION [Concomitant]
     Active Substance: CALCIUM CARBONATE
     Dates: start: 20200521
  13. GUAIFENESIN LIQUID 400MG [Concomitant]
     Dates: start: 20200521
  14. BAMLANIVIMAB. [Suspect]
     Active Substance: BAMLANIVIMAB
     Indication: SARS-COV-2 TEST POSITIVE
     Dosage: ?          OTHER FREQUENCY:ONE TIME DOSE;?
     Route: 042
  15. CARVEDILOL 3.125MG [Concomitant]
     Active Substance: CARVEDILOL
     Dates: start: 20200521
  16. LACOSAMIDE 100MG [Concomitant]
     Dates: start: 20200521
  17. LOVASTATIN 20MG [Concomitant]
     Dates: start: 20200522
  18. VITAMIN D-3 1000UNITS [Concomitant]
     Dates: start: 20200522

REACTIONS (5)
  - Rales [None]
  - Hypotension [None]
  - Tachypnoea [None]
  - Wheezing [None]
  - Hypoxia [None]

NARRATIVE: CASE EVENT DATE: 20201204
